FAERS Safety Report 14555278 (Version 1)
Quarter: 2018Q1

REPORT INFORMATION
  Report Type: Spontaneous
  Country: US (occurrence: US)
  Receive Date: 20180219
  Receipt Date: 20180219
  Transmission Date: 20180509
  Serious: Yes (Hospitalization)
  Sender: FDA-Public Use
  Company Number: None

PATIENT
  Weight: 48 kg

DRUGS (1)
  1. VANACOF [Suspect]
     Active Substance: CHLOPHEDIANOL HYDROCHLORIDE\DEXCHLORPHENIRAMINE MALEATE\PSEUDOEPHEDRINE HYDROCHLORIDE
     Indication: UPPER RESPIRATORY TRACT INFECTION
     Dosage: ?          QUANTITY:150 DROP(S);?
     Route: 048
     Dates: start: 20180202, end: 20180205

REACTIONS (7)
  - Hypersomnia [None]
  - Hypophagia [None]
  - Social problem [None]
  - Mood altered [None]
  - Dehydration [None]
  - Drug administered to patient of inappropriate age [None]
  - Dysuria [None]

NARRATIVE: CASE EVENT DATE: 20180209
